FAERS Safety Report 8806017 (Version 1)
Quarter: 2012Q4

REPORT INFORMATION
  Report Type: Spontaneous
  Country: US (occurrence: None)
  Receive Date: 20120918
  Receipt Date: 20120918
  Transmission Date: 20130627
  Serious: No
  Sender: FDA-Public Use
  Company Number: None

PATIENT
  Age: 15 Year
  Sex: Male
  Weight: 28.9 kg

DRUGS (3)
  1. LEVETIRACETAM [Suspect]
     Dosage: 1250 mg every AM by mouth
     Route: 048
     Dates: start: 20110930, end: 20120323
  2. LEVETIRACETAM [Suspect]
     Dosage: 1000 mg every PM by mouth
     Route: 048
  3. LEVETIRACETAM [Suspect]
     Route: 048
     Dates: start: 20110330, end: 20110709

REACTIONS (2)
  - Convulsion [None]
  - Product substitution issue [None]
